FAERS Safety Report 10505050 (Version 1)
Quarter: 2014Q3

REPORT INFORMATION
  Report Type: Spontaneous
  Country: US (occurrence: None)
  Receive Date: 20140915
  Receipt Date: 20140915
  Transmission Date: 20150326
  Serious: Yes (Hospitalization)
  Sender: FDA-Public Use
  Company Number: PHEH2013US020568

PATIENT
  Age: 91 Year
  Sex: Female

DRUGS (2)
  1. LIPITOR [Suspect]
     Active Substance: ATORVASTATIN CALCIUM
  2. DIOVAN [Suspect]
     Active Substance: VALSARTAN
     Indication: HYPERTENSION
     Dosage: 0.5 UNK, UNK

REACTIONS (6)
  - Palpitations [None]
  - Blood pressure decreased [None]
  - Wrong technique in drug usage process [None]
  - Ventricular extrasystoles [None]
  - Condition aggravated [None]
  - Loss of consciousness [None]
